FAERS Safety Report 7471732-6 (Version None)
Quarter: 2011Q2

REPORT INFORMATION
  Report Type: 
  Country: None (occurrence: None)
  Receive Date: 20110511
  Receipt Date: 20100416
  Transmission Date: 20111010
  Serious: No
  Sender: FDA-Public Use
  Company Number: A0843500A

PATIENT
  Age: 58 Year
  Sex: Female
  Weight: 68.6 kg

DRUGS (2)
  1. XELODA [Concomitant]
     Dosage: 3000MG CYCLIC
     Route: 048
  2. TYKERB [Suspect]
     Indication: BREAST CANCER
     Dosage: 250MG FIVE TIMES PER DAY
     Route: 048
     Dates: start: 20100201

REACTIONS (14)
  - NAUSEA [None]
  - PAIN IN EXTREMITY [None]
  - ONYCHOCLASIS [None]
  - FATIGUE [None]
  - ONYCHALGIA [None]
  - NAIL DISORDER [None]
  - LACRIMATION INCREASED [None]
  - VOMITING [None]
  - HYPOAESTHESIA [None]
  - RHINORRHOEA [None]
  - DYSPEPSIA [None]
  - NAIL BED BLEEDING [None]
  - BEDRIDDEN [None]
  - PARAESTHESIA [None]
